FAERS Safety Report 25969070 (Version 1)
Quarter: 2025Q4

REPORT INFORMATION
  Report Type: Spontaneous
  Country: US (occurrence: None)
  Receive Date: 20251027
  Receipt Date: 20251027
  Transmission Date: 20260118
  Serious: Yes (Hospitalization)
  Sender: FDA-CTU
  Company Number: None

PATIENT
  Sex: Male

DRUGS (3)
  1. CUTAQUIG [Suspect]
     Active Substance: HUMAN IMMUNOGLOBULIN G
     Indication: Immunodeficiency common variable
     Dosage: 24 G GRAM(S)  EVERY WEEK SUBCUTANEOUS?
     Route: 058
     Dates: start: 20221114
  2. DUPIXENT [Suspect]
     Active Substance: DUPILUMAB
     Indication: Immunodeficiency common variable
  3. CUTAQUIG [Suspect]
     Active Substance: HUMAN IMMUNOGLOBULIN G
     Indication: Immunodeficiency common variable
     Dosage: 1 G GRAM(S) EVERY WEEK SUBCUTANEOUS
     Route: 058
     Dates: start: 20221114

REACTIONS (4)
  - Cellulitis [None]
  - Groin abscess [None]
  - Nodule [None]
  - Pruritus [None]
